FAERS Safety Report 12084933 (Version 1)
Quarter: 2016Q1

REPORT INFORMATION
  Report Type: Spontaneous
  Country: US (occurrence: US)
  Receive Date: 20160217
  Receipt Date: 20160217
  Transmission Date: 20160526
  Serious: No
  Sender: FDA-Public Use
  Company Number: US-PERRIGO-15US013658

PATIENT
  Sex: Female

DRUGS (2)
  1. TRETINOIN. [Suspect]
     Active Substance: TRETINOIN
     Dosage: EYE DROPPER FULL, NIGHTLY
     Route: 061
     Dates: start: 201502
  2. TRETINOIN. [Suspect]
     Active Substance: TRETINOIN
     Indication: SKIN WRINKLING
     Dosage: UNK, NIGHTLY
     Route: 061
     Dates: end: 201502

REACTIONS (4)
  - Application site pain [Unknown]
  - Skin wrinkling [Unknown]
  - Application site reaction [Unknown]
  - Application site exfoliation [Unknown]

NARRATIVE: CASE EVENT DATE: 201502
